FAERS Safety Report 14561581 (Version 1)
Quarter: 2018Q1

REPORT INFORMATION
  Report Type: Spontaneous
  Country: US (occurrence: US)
  Receive Date: 20180222
  Receipt Date: 20180222
  Transmission Date: 20180509
  Serious: No
  Sender: FDA-Public Use
  Company Number: US-TEVA-2018-US-846600

PATIENT
  Age: 37 Year
  Sex: Female

DRUGS (5)
  1. CETIRIZINE HYDROCHLORIDE-PSEUDOEPHEDRINE HYDROCHLORIDE ER 176 [Suspect]
     Active Substance: CETIRIZINE HYDROCHLORIDE\PSEUDOEPHEDRINE HYDROCHLORIDE
     Indication: SINUS CONGESTION
     Dosage: PSEUDOEPHEDRINE HYDROCHLORIDE 120 MG, CETIRIZINE HYDROCHOLRIDE 5 MG, PRN
     Route: 048
     Dates: start: 20171229
  2. MULTIVITAMINS, PLAIN [Concomitant]
     Active Substance: VITAMINS
     Route: 065
     Dates: start: 2016
  3. FLAXSEED [Concomitant]
     Active Substance: FLAX SEED
     Route: 065
     Dates: end: 2016
  4. VITAMIN B COMPLEX [Concomitant]
     Active Substance: CYANOCOBALAMIN\DEXPANTHENOL\NIACINAMIDE\PYRIDOXINE HYDROCHLORIDE\RIBOFLAVIN 5^-PHOSPHATE SODIUM\THIAMINE HYDROCHLORIDE\VITAMIN B COMPLEX
     Route: 065
     Dates: start: 2016
  5. FLUTICASONE. [Concomitant]
     Active Substance: FLUTICASONE
     Route: 065
     Dates: start: 20171229

REACTIONS (1)
  - Foreign body [Not Recovered/Not Resolved]
